FAERS Safety Report 15365065 (Version 1)
Quarter: 2018Q3

REPORT INFORMATION
  Report Type: Spontaneous
  Country: US (occurrence: US)
  Receive Date: 20180910
  Receipt Date: 20180910
  Transmission Date: 20181010
  Serious: No
  Sender: FDA-Public Use
  Company Number: US-ASTRAZENECA-2018SF12069

PATIENT
  Sex: Female

DRUGS (2)
  1. BRILINTA [Suspect]
     Active Substance: TICAGRELOR
     Indication: STENT PLACEMENT
     Dosage: TWO TIMES A DAY
     Route: 048
  2. PROCARDIA XL [Concomitant]
     Active Substance: NIFEDIPINE

REACTIONS (3)
  - Product solubility abnormal [Unknown]
  - Drug dose omission [Unknown]
  - Intentional product misuse [Recovered/Resolved]
